FAERS Safety Report 18711360 (Version 1)
Quarter: 2021Q1

REPORT INFORMATION
  Report Type: Spontaneous
  Country: FR (occurrence: FR)
  Receive Date: 20210107
  Receipt Date: 20210107
  Transmission Date: 20210419
  Serious: Yes (Hospitalization)
  Sender: FDA-Public Use
  Company Number: FR-TEVA-2020-FR-1865515

PATIENT
  Age: 73 Year
  Sex: Male
  Weight: 63 kg

DRUGS (10)
  1. ITRACONAZOLE. [Concomitant]
     Active Substance: ITRACONAZOLE
  2. LEVOTHYROX [Concomitant]
     Active Substance: LEVOTHYROXINE
  3. IRBESARTAN ARROW GENERIQUES 300 MG, COMPRIME PELLICULE [Suspect]
     Active Substance: IRBESARTAN
     Indication: HYPERTENSION
     Dosage: 300 MG
     Route: 048
     Dates: end: 20201026
  4. ESOMEPRAZOLE. [Suspect]
     Active Substance: ESOMEPRAZOLE MAGNESIUM
     Indication: OESOPHAGITIS
     Dosage: 1 DF
     Route: 048
     Dates: end: 20201026
  5. VENTOLINE [Suspect]
     Active Substance: ALBUTEROL
     Indication: CHRONIC OBSTRUCTIVE PULMONARY DISEASE
     Dosage: 3 DF, IF NECESSARY
     Route: 055
     Dates: start: 20200422, end: 20201026
  6. KARDEGIC [Concomitant]
     Active Substance: ASPIRIN DL-LYSINE
  7. METFORMINE ARROW 1000 MG, COMPRIME PELLICULE SECABLE [Suspect]
     Active Substance: METFORMIN HYDROCHLORIDE
     Indication: TYPE 2 DIABETES MELLITUS
     Dosage: 2000 MG
     Route: 048
     Dates: end: 20201026
  8. DILTIAZEM (CHLORHYDRATE DE) [Suspect]
     Active Substance: DILTIAZEM HYDROCHLORIDE
     Indication: HYPERTENSION
     Dosage: 300 MG
     Route: 048
     Dates: end: 20201026
  9. LAROXYL [Concomitant]
     Active Substance: AMITRIPTYLINE HYDROCHLORIDE
  10. TRELEGY ELLIPTA [Suspect]
     Active Substance: FLUTICASONE FUROATE\UMECLIDINIUM BROMIDE\VILANTEROL TRIFENATATE
     Indication: CHRONIC OBSTRUCTIVE PULMONARY DISEASE
     Dosage: 1 DF
     Route: 055
     Dates: start: 20200422, end: 20201026

REACTIONS (4)
  - Acute kidney injury [Recovered/Resolved]
  - Hyponatraemia [Recovered/Resolved]
  - Bradycardia [Recovered/Resolved]
  - Hyperkalaemia [Recovered/Resolved]

NARRATIVE: CASE EVENT DATE: 20201026
